FAERS Safety Report 4807916-2 (Version None)
Quarter: 2005Q4

REPORT INFORMATION
  Report Type: 
  Country: None (occurrence: None)
  Receive Date: 20051024
  Receipt Date: 20051012
  Transmission Date: 20060501
  Serious: Yes (Hospitalization)
  Sender: FDA-Public Use
  Company Number: US-MERCK-0510USA06808

PATIENT
  Age: 79 Year
  Sex: Male
  Weight: 54 kg

DRUGS (6)
  1. ECOTRIN [Concomitant]
     Route: 065
  2. COMBIVENT [Concomitant]
     Route: 065
  3. ADVAIR DISKUS 100/50 [Concomitant]
     Route: 065
  4. SINGULAIR [Suspect]
     Indication: ASTHMA
     Route: 048
     Dates: end: 20040101
  5. ACIPHEX [Concomitant]
     Route: 065
  6. QUININE SULFATE [Concomitant]
     Route: 065

REACTIONS (1)
  - LIVER FUNCTION TEST ABNORMAL [None]
